FAERS Safety Report 11519646 (Version 1)
Quarter: 2015Q3

REPORT INFORMATION
  Report Type: Spontaneous
  Country: US (occurrence: US)
  Receive Date: 20150918
  Receipt Date: 20150918
  Transmission Date: 20151125
  Serious: No
  Sender: FDA-Public Use
  Company Number: US-GLENMARK PHARMACEUTICALS INC, USA.-2014GMK011543

PATIENT
  Age: 23 Year
  Sex: Female

DRUGS (4)
  1. NORETHINDRONE ACETATE TABLETS [Suspect]
     Active Substance: NORETHINDRONE ACETATE
     Dosage: UNK
     Dates: start: 20141002
  2. NEXIUM [Concomitant]
     Active Substance: ESOMEPRAZOLE MAGNESIUM
     Dosage: 40 MG, PRN
  3. LORAZEPAM. [Concomitant]
     Active Substance: LORAZEPAM
     Dosage: 5 MG, QD AS NEEDED
  4. LUPRON [Suspect]
     Active Substance: LEUPROLIDE ACETATE
     Dosage: 11.25 MG, EVERY 3 MONTHS
     Dates: start: 20141002

REACTIONS (8)
  - Abdominal pain upper [Not Recovered/Not Resolved]
  - Nervousness [Not Recovered/Not Resolved]
  - Hot flush [Not Recovered/Not Resolved]
  - Breast pain [Not Recovered/Not Resolved]
  - Nausea [Not Recovered/Not Resolved]
  - Middle insomnia [Not Recovered/Not Resolved]
  - Skin burning sensation [Not Recovered/Not Resolved]
  - Tremor [Not Recovered/Not Resolved]

NARRATIVE: CASE EVENT DATE: 20141002
